FAERS Safety Report 5007000-1 (Version None)
Quarter: 2006Q2

REPORT INFORMATION
  Report Type: 
  Country: None (occurrence: None)
  Receive Date: 20060517
  Receipt Date: 20060504
  Transmission Date: 20061013
  Serious: Yes (Death, Other)
  Sender: FDA-Public Use
  Company Number: B0423100A

PATIENT
  Sex: 0

DRUGS (9)
  1. MELPHALAN (MELPHALAN) [Suspect]
     Indication: MULTIPLE MYELOMA
     Dosage: 8 MG/M2 / CYCLIC
  2. VINCRISTINE [Suspect]
     Indication: MULTIPLE MYELOMA
     Dosage: 1.2 MG/M2 / CYCLIC
  3. CARMUSTINE [Suspect]
     Indication: MULTIPLE MYELOMA
     Dosage: 20 MG/M2 / CYCLIC
  4. CYCLOPHOSPHAMIDE [Suspect]
     Indication: MULTIPLE MYELOMA
     Dosage: 400 MG/M2 / CYCLIC / INTRAVENOUS
     Route: 042
  5. PREDNISONE TAB [Suspect]
     Indication: MULTIPLE MYELOMA
     Dosage: 40 MG/M2 / CYCLIC / ORAL
     Route: 048
  6. VINCRISTINE [Concomitant]
  7. DOXORUBICIN HCL [Concomitant]
  8. DEXAMETHASONE TAB [Concomitant]
  9. CYCLOPHOSPHAMIDE [Concomitant]

REACTIONS (2)
  - ACUTE RESPIRATORY DISTRESS SYNDROME [None]
  - PULMONARY OEDEMA [None]
